FAERS Safety Report 23306634 (Version 1)
Quarter: 2023Q4

REPORT INFORMATION
  Report Type: Report from Study
  Country: ES (occurrence: ES)
  Receive Date: 20231218
  Receipt Date: 20231218
  Transmission Date: 20240110
  Serious: Yes (Hospitalization)
  Sender: FDA-Public Use
  Company Number: None

PATIENT
  Age: 51 Year
  Sex: Female

DRUGS (6)
  1. BORTEZOMIB [Suspect]
     Active Substance: BORTEZOMIB
     Indication: Plasma cell myeloma
     Dosage: UNK
     Route: 058
     Dates: start: 20200907, end: 20201016
  2. THALIDOMIDE [Suspect]
     Active Substance: THALIDOMIDE
     Indication: Plasma cell myeloma
     Dosage: 50 MILLIGRAM, QD
     Route: 048
     Dates: start: 20200904, end: 20200915
  3. THALIDOMIDE [Suspect]
     Active Substance: THALIDOMIDE
     Dosage: 100 MILLIGRAM, QD
     Route: 048
     Dates: start: 20200916, end: 20201015
  4. THALIDOMIDE [Suspect]
     Active Substance: THALIDOMIDE
     Dosage: 200 MILLIGRAM, QD
     Route: 048
     Dates: start: 20201016, end: 20201028
  5. ALLOPURINOL [Suspect]
     Active Substance: ALLOPURINOL
     Indication: Chemotherapy side effect prophylaxis
     Dosage: 300 MILLIGRAM, QD
     Route: 048
     Dates: start: 20200904, end: 20200915
  6. ALLOPURINOL [Suspect]
     Active Substance: ALLOPURINOL
     Dosage: 150 MILLIGRAM, QD
     Route: 048
     Dates: start: 20200916, end: 20201016

REACTIONS (1)
  - Drug reaction with eosinophilia and systemic symptoms [Recovered/Resolved]

NARRATIVE: CASE EVENT DATE: 20201022
